FAERS Safety Report 9396118 (Version 1)
Quarter: 2013Q3

REPORT INFORMATION
  Report Type: Spontaneous
  Country: IT (occurrence: IT)
  Receive Date: 20130711
  Receipt Date: 20130711
  Transmission Date: 20140515
  Serious: Yes (Life-Threatening, Hospitalization)
  Sender: FDA-Public Use
  Company Number: IT-ASTRAZENECA-2013SE51244

PATIENT
  Age: 23378 Day
  Sex: Female
  Weight: 60 kg

DRUGS (9)
  1. SEROQUEL [Suspect]
     Route: 048
     Dates: start: 20130613, end: 20130613
  2. MIRTAZAPINE [Suspect]
     Route: 048
     Dates: start: 20130613, end: 20130613
  3. ANSIOLIN [Suspect]
     Route: 048
     Dates: start: 20130613, end: 20130613
  4. EFEXOR [Suspect]
     Route: 048
     Dates: start: 20130613, end: 20130613
  5. EFEXOR [Suspect]
     Route: 048
     Dates: start: 20130613, end: 20130613
  6. ENALAPRIL [Suspect]
     Route: 048
     Dates: start: 20130613, end: 20130613
  7. ELONTRIL [Suspect]
     Route: 048
     Dates: start: 20130613, end: 20130613
  8. NOZINAN [Suspect]
     Route: 048
     Dates: start: 20130613, end: 20130613
  9. TOPAMAX [Suspect]
     Route: 048
     Dates: start: 20130613, end: 20130613

REACTIONS (5)
  - Overdose [Recovered/Resolved]
  - Drug abuse [Recovered/Resolved]
  - Hepatic enzyme increased [Recovered/Resolved]
  - Pain [Recovered/Resolved]
  - Coma [Recovered/Resolved]
